FAERS Safety Report 25818217 (Version 1)
Quarter: 2025Q3

REPORT INFORMATION
  Report Type: Spontaneous
  Country: EU (occurrence: EU)
  Receive Date: 20250918
  Receipt Date: 20250918
  Transmission Date: 20251020
  Serious: Yes (Hospitalization)
  Sender: NOVO NORDISK
  Company Number: EU-NOVOPROD-1522205

PATIENT
  Age: 49 Year
  Sex: Female
  Weight: 88.5 kg

DRUGS (1)
  1. WEGOVY [Suspect]
     Active Substance: SEMAGLUTIDE
     Indication: Product used for unknown indication
     Dates: start: 202507, end: 202508

REACTIONS (3)
  - Ketoacidosis [Unknown]
  - Hypophagia [Unknown]
  - Drug dose titration not performed [Unknown]
